FAERS Safety Report 4575068-2 (Version None)
Quarter: 2005Q1

REPORT INFORMATION
  Report Type: 
  Country: None (occurrence: None)
  Receive Date: 20050208
  Receipt Date: 20041124
  Transmission Date: 20050727
  Serious: Yes (Congenital Anomaly)
  Sender: FDA-Public Use
  Company Number: 25935

PATIENT
  Sex: Male

DRUGS (6)
  1. LAMIVUDINE AND ZIDOVUDINE [Suspect]
     Indication: VIRAL INFECTION
     Dosage: 600MG PER DAY
     Dates: start: 20040130, end: 20040601
  2. ZIDOVUDINE [Suspect]
     Indication: VIRAL INFECTION
     Dosage: 600MG PER DAY
     Dates: start: 20040601, end: 20040720
  3. NELFINAVIR [Suspect]
     Indication: VIRAL INFECTION
     Dosage: 2500MG PER DAY
     Dates: start: 20040130, end: 20040601
  4. LOPINAVIR + RITONAVIR [Suspect]
     Indication: VIRAL INFECTION
     Dosage: 600MG PER DAY
     Dates: start: 20040601
  5. TENOFOVIR DISOPROXIL FUMARATE [Suspect]
     Indication: VIRAL INFECTION
     Dosage: 300MG PER DAY
     Dates: start: 20040601, end: 20040720
  6. FOLATE [Suspect]

REACTIONS (5)
  - ABDOMINAL DISTENSION [None]
  - ABDOMINAL HERNIA [None]
  - CARDIAC MURMUR [None]
  - CRYPTORCHISM [None]
  - DRUG EXPOSURE DURING PREGNANCY [None]
